FAERS Safety Report 9871041 (Version 1)
Quarter: 2014Q1

REPORT INFORMATION
  Report Type: Spontaneous
  Country: US (occurrence: US)
  Receive Date: 20140205
  Receipt Date: 20140205
  Transmission Date: 20141002
  Serious: Yes (Other)
  Sender: FDA-Public Use
  Company Number: CHPA2014US002079

PATIENT
  Sex: Male

DRUGS (1)
  1. EX-LAX MAX STR LAX PILLS SENNA [Suspect]
     Dosage: 3 DF, ONCE/SINGLE
     Route: 048
     Dates: start: 20140127

REACTIONS (2)
  - Blood pressure systolic increased [Unknown]
  - Incorrect dose administered [Unknown]
